FAERS Safety Report 16629066 (Version 2)
Quarter: 2019Q3

REPORT INFORMATION
  Report Type: Spontaneous
  Country: BR (occurrence: BR)
  Receive Date: 20190725
  Receipt Date: 20190823
  Transmission Date: 20191004
  Serious: Yes (Other)
  Sender: FDA-Public Use
  Company Number: BR-GLAXOSMITHKLINE-BR2018GSK132785

PATIENT
  Age: 32 Year
  Sex: Female
  Weight: 83 kg

DRUGS (4)
  1. BENLYSTA [Suspect]
     Active Substance: BELIMUMAB
     Indication: SYSTEMIC LUPUS ERYTHEMATOSUS
     Dosage: 800 MG, UNK
     Dates: start: 20170113
  2. SIMVASTATIN. [Concomitant]
     Active Substance: SIMVASTATIN
     Indication: PRODUCT USED FOR UNKNOWN INDICATION
     Dosage: 20 MG, UNK
  3. AZATHIOPRINE. [Concomitant]
     Active Substance: AZATHIOPRINE
     Indication: SYSTEMIC LUPUS ERYTHEMATOSUS
     Dosage: 2 DF, QD, 50MG
  4. CALCIUM WITH VITAMIN D [Concomitant]
     Active Substance: CALCIUM\VITAMIN D
     Indication: PRODUCT USED FOR UNKNOWN INDICATION
     Dosage: 600 MG, QD

REACTIONS (18)
  - Depression [Recovered/Resolved]
  - Peripheral swelling [Unknown]
  - Inappropriate schedule of product administration [Recovered/Resolved]
  - Product dose omission [Not Recovered/Not Resolved]
  - Skin haemorrhage [Unknown]
  - Malaise [Unknown]
  - Vasculitis [Unknown]
  - Depressed mood [Unknown]
  - Therapeutic response unexpected [Unknown]
  - Wound [Unknown]
  - Road traffic accident [Recovered/Resolved]
  - Asthenia [Unknown]
  - Disease recurrence [Recovering/Resolving]
  - Dengue fever [Unknown]
  - Skin laceration [Unknown]
  - Decreased interest [Unknown]
  - Skin fissures [Unknown]
  - Underdose [Not Recovered/Not Resolved]

NARRATIVE: CASE EVENT DATE: 20180723
